FAERS Safety Report 18235529 (Version 2)
Quarter: 2020Q3

REPORT INFORMATION
  Report Type: Spontaneous
  Country: IT (occurrence: IT)
  Receive Date: 20200905
  Receipt Date: 20200909
  Transmission Date: 20201103
  Serious: Yes (Hospitalization)
  Sender: FDA-Public Use
  Company Number: IT-TEVA-2020-IT-1822670

PATIENT
  Age: 39 Year
  Sex: Female

DRUGS (6)
  1. PARACETAMOL [Suspect]
     Active Substance: ACETAMINOPHEN
     Dosage: 32 GRAM
     Route: 048
     Dates: start: 20200809, end: 20200809
  2. DELORAZEPAM [Suspect]
     Active Substance: DELORAZEPAM
     Dosage: 20 ML
     Route: 048
     Dates: start: 20200809, end: 20200809
  3. TEGRETOL [Suspect]
     Active Substance: CARBAMAZEPINE
     Dosage: 30 DF
     Route: 048
     Dates: start: 20200809, end: 20200809
  4. INVEGA [Suspect]
     Active Substance: PALIPERIDONE
     Dosage: 28 DF
     Route: 048
     Dates: start: 20200809, end: 20200809
  5. NUROFEN [Suspect]
     Active Substance: IBUPROFEN
     Dosage: 24 DF
     Route: 048
     Dates: start: 20200809, end: 20200809
  6. QUETIAPINE. [Suspect]
     Active Substance: QUETIAPINE
     Dosage: 60 DF
     Route: 048
     Dates: start: 20200809, end: 20200809

REACTIONS (5)
  - Somnolence [Recovering/Resolving]
  - Hypotension [Recovering/Resolving]
  - Intentional overdose [Recovering/Resolving]
  - Bradyphrenia [Recovering/Resolving]
  - Intentional self-injury [Recovering/Resolving]

NARRATIVE: CASE EVENT DATE: 20200809
